FAERS Safety Report 6880768-5 (Version None)
Quarter: 2010Q3

REPORT INFORMATION
  Report Type: 
  Country: None (occurrence: None)
  Receive Date: 20100728
  Receipt Date: 20100720
  Transmission Date: 20110219
  Serious: Yes (Death)
  Sender: FDA-Public Use
  Company Number: DE-MPIJNJ-2010-03793

PATIENT

DRUGS (2)
  1. VELCADE [Suspect]
     Indication: MULTIPLE MYELOMA
     Dosage: 1.3 MG/M2, UNK
     Route: 065
     Dates: start: 20100209, end: 20100617
  2. DEXAMETHASONE [Concomitant]
     Dosage: UNK, UNK

REACTIONS (3)
  - DEATH [None]
  - DISEASE PROGRESSION [None]
  - DRUG INEFFECTIVE [None]
